FAERS Safety Report 23103253 (Version 1)
Quarter: 2023Q4

REPORT INFORMATION
  Report Type: Spontaneous
  Country: MX (occurrence: MX)
  Receive Date: 20231025
  Receipt Date: 20231025
  Transmission Date: 20240110
  Serious: Yes (Hospitalization, Other)
  Sender: FDA-Public Use
  Company Number: MX-AMGEN-MEXSP2023185815

PATIENT
  Sex: Female

DRUGS (3)
  1. FILGRASTIM [Suspect]
     Active Substance: FILGRASTIM
     Indication: Infantile genetic agranulocytosis
     Dosage: 30 MICROGRAM/KILOGRAM, QD
     Route: 065
     Dates: start: 2021
  2. FILGRASTIM [Suspect]
     Active Substance: FILGRASTIM
     Dosage: 80 MICROGRAM/KILOGRAM, QD
     Route: 065
     Dates: start: 2021
  3. FILGRASTIM [Suspect]
     Active Substance: FILGRASTIM
     Dosage: 17 MICROGRAM/KILOGRAM, QD
     Route: 065

REACTIONS (3)
  - Pseudomonas infection [Recovered/Resolved]
  - Groin abscess [Recovered/Resolved]
  - Off label use [Unknown]

NARRATIVE: CASE EVENT DATE: 20210101
